FAERS Safety Report 20331795 (Version 1)
Quarter: 2022Q1

REPORT INFORMATION
  Report Type: Spontaneous
  Country: US (occurrence: None)
  Receive Date: 20220112
  Receipt Date: 20220112
  Transmission Date: 20220423
  Serious: Yes (Death)
  Sender: FDA-Public Use
  Company Number: None

PATIENT
  Age: 70 Year
  Sex: Male
  Weight: 83.46 kg

DRUGS (1)
  1. SANDOSTATIN LAR DEPOT [Suspect]
     Active Substance: OCTREOTIDE ACETATE
     Dosage: FREQUENCY : MONTHLY;?
     Route: 030
     Dates: start: 20210928, end: 20211118

REACTIONS (1)
  - Death [None]

NARRATIVE: CASE EVENT DATE: 20211118
